FAERS Safety Report 5113017-9 (Version None)
Quarter: 2006Q3

REPORT INFORMATION
  Report Type: 
  Country: None (occurrence: None)
  Receive Date: 20060921
  Receipt Date: 20060921
  Transmission Date: 20061208
  Serious: Yes (Death)
  Sender: FDA-Public Use
  Company Number: None

PATIENT
  Age: 96 Year
  Sex: Female
  Weight: 58.9676 kg

DRUGS (2)
  1. LEVAQUIN [Suspect]
     Indication: BODY TEMPERATURE
     Dosage: 500 MG 1 PER DAY PO
     Route: 048
     Dates: start: 20060817, end: 20060817
  2. LEVAQUIN [Suspect]
     Indication: CHEST DISCOMFORT
     Dosage: 500 MG 1 PER DAY PO
     Route: 048
     Dates: start: 20060817, end: 20060817

REACTIONS (2)
  - CEREBROVASCULAR ACCIDENT [None]
  - HEMIPLEGIA [None]
